FAERS Safety Report 9991567 (Version 1)
Quarter: 2014Q1

REPORT INFORMATION
  Report Type: Spontaneous
  Country: CZ (occurrence: CZ)
  Receive Date: 20140310
  Receipt Date: 20140310
  Transmission Date: 20141002
  Serious: Yes (Life-Threatening, Hospitalization, Disabling, Other)
  Sender: FDA-Public Use
  Company Number: CZ-TEVA-465873ISR

PATIENT
  Sex: Male

DRUGS (3)
  1. COPAXONE 20 MG/ML [Suspect]
     Indication: MULTIPLE SCLEROSIS
     Route: 051
     Dates: start: 2012
  2. LOZAP 50 ZENTIVA [Concomitant]
     Indication: HYPERTENSION
     Dosage: 50 MILLIGRAM DAILY;
     Route: 048
  3. MEDROL 4 MG [Concomitant]
     Indication: MULTIPLE SCLEROSIS
     Dosage: 4 MILLIGRAM DAILY;
     Route: 048
     Dates: start: 2012

REACTIONS (1)
  - Metastatic carcinoid tumour [Unknown]
